FAERS Safety Report 17224978 (Version 1)
Quarter: 2020Q1

REPORT INFORMATION
  Report Type: Spontaneous
  Country: SE (occurrence: SE)
  Receive Date: 20200102
  Receipt Date: 20200102
  Transmission Date: 20200409
  Serious: Yes (Hospitalization)
  Sender: FDA-Public Use
  Company Number: SE-MYLANLABS-2019M1131563

PATIENT
  Age: 15 Year
  Sex: Female

DRUGS (1)
  1. LERGIGAN (PROMETHAZINE) [Suspect]
     Active Substance: PROMETHAZINE HYDROCHLORIDE
     Indication: PRODUCT USED FOR UNKNOWN INDICATION
     Dosage: 9 ST (1DF, TOTAL)
     Route: 048
     Dates: start: 20180330, end: 20180330

REACTIONS (3)
  - Confusional state [Unknown]
  - Dysarthria [Unknown]
  - Overdose [Unknown]

NARRATIVE: CASE EVENT DATE: 20180330
